FAERS Safety Report 16328560 (Version 4)
Quarter: 2020Q1

REPORT INFORMATION
  Report Type: Spontaneous
  Country: FR (occurrence: FR)
  Receive Date: 20190518
  Receipt Date: 20200110
  Transmission Date: 20200409
  Serious: Yes (Life-Threatening, Hospitalization, Other)
  Sender: FDA-Public Use
  Company Number: PHHY2019FR110591

PATIENT
  Age: 39 Year
  Sex: Female

DRUGS (5)
  1. VALPROATE SODIUM. [Interacting]
     Active Substance: VALPROATE SODIUM
     Indication: MAJOR DEPRESSION
     Dosage: 18.5 MG, UNK
     Route: 048
  2. QUETIAPINE. [Suspect]
     Active Substance: QUETIAPINE
     Indication: MAJOR DEPRESSION
     Dosage: 4 G, UNK
     Route: 048
  3. PROPRANOLOL [Suspect]
     Active Substance: PROPRANOLOL HYDROCHLORIDE
     Indication: MAJOR DEPRESSION
     Dosage: 400 MG, UNK
     Route: 048
  4. DIAZEPAM. [Suspect]
     Active Substance: DIAZEPAM
     Indication: MAJOR DEPRESSION
     Dosage: 100 MG
     Route: 048
  5. ALPRAZOLAM. [Suspect]
     Active Substance: ALPRAZOLAM
     Indication: MAJOR DEPRESSION
     Dosage: 20MG
     Route: 048

REACTIONS (12)
  - Condition aggravated [Recovering/Resolving]
  - Coma [Recovering/Resolving]
  - Electrocardiogram QRS complex shortened [Unknown]
  - Intentional overdose [Unknown]
  - Hypotension [Unknown]
  - Toxicity to various agents [Recovering/Resolving]
  - Somnolence [Unknown]
  - Drug interaction [Unknown]
  - Overdose [Unknown]
  - Pneumonia aspiration [Unknown]
  - Lung disorder [Unknown]
  - Blood creatine phosphokinase increased [Unknown]
